FAERS Safety Report 25832932 (Version 1)
Quarter: 2025Q3

REPORT INFORMATION
  Report Type: Spontaneous
  Country: US (occurrence: US)
  Receive Date: 20250922
  Receipt Date: 20250922
  Transmission Date: 20251020
  Serious: No
  Sender: BRAINTREE
  Company Number: US-BRAINTREE LABORATORIES, INC.-2025BTE00354

PATIENT
  Age: 68 Year
  Sex: Female
  Weight: 89.796 kg

DRUGS (4)
  1. SODIUM SULFATE, POTASSIUM SULFATE, MAGNESIUM SULFATE [Suspect]
     Active Substance: MAGNESIUM SULFATE\POTASSIUM SULFATE\SODIUM SULFATE
     Indication: Colonoscopy
     Route: 048
     Dates: start: 20250527, end: 20250527
  2. LOSARTAN [Concomitant]
     Active Substance: LOSARTAN
  3. ADEFOVIR [Concomitant]
     Active Substance: ADEFOVIR
  4. VITAMINS NOS [Concomitant]
     Active Substance: VITAMINS

REACTIONS (4)
  - Chest discomfort [Not Recovered/Not Resolved]
  - Feeling abnormal [Not Recovered/Not Resolved]
  - Nausea [Not Recovered/Not Resolved]
  - Vomiting [Not Recovered/Not Resolved]

NARRATIVE: CASE EVENT DATE: 20250527
